FAERS Safety Report 15880762 (Version 1)
Quarter: 2019Q1

REPORT INFORMATION
  Report Type: Spontaneous
  Country: US (occurrence: US)
  Receive Date: 20190128
  Receipt Date: 20190128
  Transmission Date: 20190417
  Serious: Yes (Life-Threatening, Disabling)
  Sender: FDA-Public Use
  Company Number: None

PATIENT
  Age: 21 Year
  Sex: Female
  Weight: 72 kg

DRUGS (7)
  1. VIMPAT [Concomitant]
     Active Substance: LACOSAMIDE
  2. VITAMIN D [Concomitant]
     Active Substance: CHOLECALCIFEROL
  3. KEPPRA [Concomitant]
     Active Substance: LEVETIRACETAM
  4. CLOBAZAM 10MG TABLET [Suspect]
     Active Substance: CLOBAZAM
     Indication: LENNOX-GASTAUT SYNDROME
     Dosage: ?          QUANTITY:1 TABLET(S);?
     Route: 048
     Dates: start: 20181125, end: 20190127
  5. VALPROIC ACID. [Concomitant]
     Active Substance: VALPROIC ACID
  6. TOPAMAX [Concomitant]
     Active Substance: TOPIRAMATE
  7. CLOBAZAM 10MG TABLET [Suspect]
     Active Substance: CLOBAZAM
     Indication: EPILEPSY
     Dosage: ?          QUANTITY:1 TABLET(S);?
     Route: 048
     Dates: start: 20181125, end: 20190127

REACTIONS (2)
  - Product substitution issue [None]
  - Epilepsy [None]

NARRATIVE: CASE EVENT DATE: 20181125
